FAERS Safety Report 6369308-7 (Version None)
Quarter: 2009Q3

REPORT INFORMATION
  Report Type: 
  Country: None (occurrence: None)
  Receive Date: 20090916
  Receipt Date: 20090831
  Transmission Date: 20100115
  Serious: Yes (Life-Threatening)
  Sender: FDA-Public Use
  Company Number: THQ2009A04290

PATIENT
  Age: 46 Year
  Sex: Male

DRUGS (10)
  1. LANSOPRAZOLE [Suspect]
     Indication: GASTRIC DISORDER
     Dosage: 30 MG 1 D PER ORAL
     Route: 048
     Dates: start: 20081201, end: 20090611
  2. LANSOPRAZOLE [Suspect]
     Indication: PROPHYLAXIS
     Dosage: 30 MG 1 D PER ORAL
     Route: 048
     Dates: start: 20081201, end: 20090611
  3. CELLCEPT [Suspect]
     Dosage: 1 GM 1 D PER ORAL
     Route: 048
     Dates: start: 20081213, end: 20090611
  4. PROGRAF [Concomitant]
  5. PREDNISONE [Concomitant]
  6. HYDROCORTISONE [Concomitant]
  7. TENORMIN [Concomitant]
  8. NEOCORMON (EPOETIN BETA) [Concomitant]
  9. MIMPARA (CINACALCET) [Concomitant]
  10. ATARAX [Concomitant]

REACTIONS (5)
  - COAGULATION FACTOR DECREASED [None]
  - HEPATOMEGALY [None]
  - HISTIOCYTOSIS HAEMATOPHAGIC [None]
  - HYPERTRIGLYCERIDAEMIA [None]
  - THROMBOCYTOPENIA [None]
